FAERS Safety Report 11005738 (Version 4)
Quarter: 2015Q2

REPORT INFORMATION
  Report Type: Spontaneous
  Country: US (occurrence: US)
  Receive Date: 20150409
  Receipt Date: 20150527
  Transmission Date: 20150821
  Serious: Yes (Hospitalization, Other)
  Sender: FDA-Public Use
  Company Number: US-ASTRAZENECA-2015SE06874

PATIENT
  Sex: Female
  Weight: 68 kg

DRUGS (7)
  1. SYMBICORT [Suspect]
     Active Substance: BUDESONIDE\FORMOTEROL FUMARATE DIHYDRATE
     Indication: EMPHYSEMA
     Dosage: 160/4.5 MCG, 2 PUFFS IN THE MORNING AND 2 PUFFS AT NIGHT
     Route: 055
  2. BENADRYL [Suspect]
     Active Substance: DIPHENHYDRAMINE HYDROCHLORIDE
     Route: 065
  3. UNSPECIFIED ANTIBIOTICS [Suspect]
     Active Substance: UNSPECIFIED INGREDIENT
     Indication: DIVERTICULITIS
     Route: 065
  4. UNSPECIFIED ANTIBIOTICS [Suspect]
     Active Substance: UNSPECIFIED INGREDIENT
     Indication: DIVERTICULITIS
     Route: 065
  5. BABY ASPIRIN [Concomitant]
     Active Substance: ASPIRIN
  6. SPIRIVA [Concomitant]
     Active Substance: TIOTROPIUM BROMIDE MONOHYDRATE
  7. SYMBICORT [Suspect]
     Active Substance: BUDESONIDE\FORMOTEROL FUMARATE DIHYDRATE
     Indication: CHRONIC OBSTRUCTIVE PULMONARY DISEASE
     Dosage: 160/4.5 MCG, 2 PUFFS IN THE MORNING AND 2 PUFFS AT NIGHT
     Route: 055

REACTIONS (20)
  - Feeling abnormal [Unknown]
  - Activities of daily living impaired [Unknown]
  - Drug ineffective for unapproved indication [Unknown]
  - Drug dose omission [Unknown]
  - Memory impairment [Unknown]
  - Malaise [Unknown]
  - Back pain [Unknown]
  - Pruritus [Unknown]
  - Product use issue [Unknown]
  - Volvulus [Unknown]
  - Palpitations [Unknown]
  - Myocardial infarction [Unknown]
  - Intervertebral disc protrusion [Unknown]
  - Peripheral swelling [Unknown]
  - Dyspnoea [Unknown]
  - Chest discomfort [Unknown]
  - Diverticulitis [Unknown]
  - Emphysema [Unknown]
  - Chronic obstructive pulmonary disease [Unknown]
  - Aphonia [Unknown]
